FAERS Safety Report 19620320 (Version 1)
Quarter: 2021Q3

REPORT INFORMATION
  Report Type: Spontaneous
  Country: US (occurrence: US)
  Receive Date: 20210727
  Receipt Date: 20210727
  Transmission Date: 20211014
  Serious: No
  Sender: FDA-Public Use
  Company Number: None

PATIENT
  Age: 34 Year
  Sex: Female
  Weight: 48.6 kg

DRUGS (14)
  1. OSTEO BI?FLEX [Concomitant]
     Active Substance: CHONDROITIN SULFATE A\GLUCOSAMINE
  2. IRON [Concomitant]
     Active Substance: IRON
  3. KRILL OIL [Concomitant]
     Active Substance: DIETARY SUPPLEMENT\KRILL OIL
  4. L?TYROSINE [Concomitant]
     Active Substance: TYROSINE
  5. ACYCLOVIR. [Concomitant]
     Active Substance: ACYCLOVIR
  6. VITAMIN E [Concomitant]
     Active Substance: .ALPHA.-TOCOPHEROL
  7. VITAMIN B COMPLEX [Concomitant]
     Active Substance: CYANOCOBALAMIN\DEXPANTHENOL\NIACINAMIDE\PYRIDOXINE HYDROCHLORIDE\RIBOFLAVIN 5^-PHOSPHATE SODIUM\THIAMINE HYDROCHLORIDE\VITAMIN B COMPLEX
  8. L?LYSINE [Concomitant]
     Active Substance: LYSINE
  9. TURMERIC [Concomitant]
     Active Substance: HERBALS\TURMERIC
  10. THEANINE [Concomitant]
     Active Substance: THEANINE
  11. TRIAMCINOLONE [Suspect]
     Active Substance: TRIAMCINOLONE
     Indication: INFLAMMATION
     Dates: start: 20210317
  12. VITAMIN D [Concomitant]
     Active Substance: VITAMIN D NOS
  13. MAGNESIUM [Concomitant]
     Active Substance: MAGNESIUM
  14. TRIAMCINOLONE [Suspect]
     Active Substance: TRIAMCINOLONE
     Indication: BRONCHOSPASM
     Dates: start: 20210317

REACTIONS (1)
  - Injection site erosion [None]

NARRATIVE: CASE EVENT DATE: 20210701
